FAERS Safety Report 19357905 (Version 4)
Quarter: 2021Q3

REPORT INFORMATION
  Report Type: Other
  Country: US (occurrence: US)
  Receive Date: 20210602
  Receipt Date: 20210906
  Transmission Date: 20211014
  Serious: Yes (Hospitalization, Other)
  Sender: FDA-Public Use
  Company Number: US-ROCHE-2836889

PATIENT
  Sex: Female
  Weight: 39.5 kg

DRUGS (7)
  1. CLONAZEPAM. [Suspect]
     Active Substance: CLONAZEPAM
     Indication: PRODUCT USED FOR UNKNOWN INDICATION
     Dosage: ONGOING YES
     Route: 048
     Dates: start: 2012
  2. MELATONIN [Concomitant]
     Active Substance: MELATONIN
     Dosage: ONGOING: YES
     Route: 048
  3. OCREVUS [Suspect]
     Active Substance: OCRELIZUMAB
     Route: 042
  4. OXCARBAZEPINE. [Concomitant]
     Active Substance: OXCARBAZEPINE
     Indication: MUSCLE TWITCHING
     Dosage: ONGOING YES
     Route: 048
     Dates: start: 2011
  5. OCREVUS [Suspect]
     Active Substance: OCRELIZUMAB
     Indication: RELAPSING MULTIPLE SCLEROSIS
     Dosage: ONGOING YES?DATE OF TREATMENT: 26/APR/2018, 29/OCT/2018, 13/MAY/2019, 14/NOV/2019, 15/MAY/2020
     Route: 042
  6. OCREVUS [Suspect]
     Active Substance: OCRELIZUMAB
     Dosage: DATE OF TREATMENT: 10/NOV/2017
     Route: 042
     Dates: start: 20171027
  7. OXYBUTYNIN. [Concomitant]
     Active Substance: OXYBUTYNIN CHLORIDE
     Dosage: ONGOING YES
     Route: 048

REACTIONS (5)
  - Pneumonia [Recovered/Resolved]
  - Infection [Unknown]
  - Decubitus ulcer [Unknown]
  - Urinary retention [Unknown]
  - Decubitus ulcer [Not Recovered/Not Resolved]

NARRATIVE: CASE EVENT DATE: 2012
